FAERS Safety Report 20317223 (Version 1)
Quarter: 2022Q1

REPORT INFORMATION
  Report Type: Spontaneous
  Country: US (occurrence: US)
  Receive Date: 20220110
  Receipt Date: 20220110
  Transmission Date: 20220423
  Serious: No
  Sender: FDA-Public Use
  Company Number: US-GLENMARK PHARMACEUTICALS-2021GMK068758

PATIENT

DRUGS (1)
  1. BETAMETHASONE DIPROPIONATE\CLOTRIMAZOLE [Suspect]
     Active Substance: BETAMETHASONE DIPROPIONATE\CLOTRIMAZOLE
     Indication: Fungal infection
     Dosage: UNK
     Route: 061
     Dates: start: 2021

REACTIONS (3)
  - Therapeutic product effect incomplete [Unknown]
  - Fungal skin infection [Unknown]
  - Infection [Unknown]

NARRATIVE: CASE EVENT DATE: 20210101
